FAERS Safety Report 23535142 (Version 3)
Quarter: 2024Q1

REPORT INFORMATION
  Report Type: Spontaneous
  Country: FR (occurrence: FR)
  Receive Date: 20240218
  Receipt Date: 20240228
  Transmission Date: 20240410
  Serious: Yes (Life-Threatening, Hospitalization)
  Sender: FDA-Public Use
  Company Number: None

PATIENT
  Age: 2 Year
  Sex: Male
  Weight: 10 kg

DRUGS (12)
  1. CLONIDINE [Suspect]
     Active Substance: CLONIDINE
     Indication: Dystonia
     Dosage: 1.000UG/KG QD
     Route: 048
     Dates: start: 20231118, end: 20231120
  2. CLONIDINE [Suspect]
     Active Substance: CLONIDINE
     Indication: Dystonia
     Dosage: 10.000UG/KG QD
     Route: 042
     Dates: start: 20231117, end: 20231117
  3. CEFTRIAXONE SODIUM [Suspect]
     Active Substance: CEFTRIAXONE SODIUM
     Indication: Hyperthermia
     Dosage: 100.000MG/KG
     Route: 042
     Dates: start: 20231120, end: 20231120
  4. GENTAMICIN [Suspect]
     Active Substance: GENTAMICIN
     Indication: Hyperthermia
     Dosage: 5.000MG/KG
     Route: 042
     Dates: start: 20231120, end: 20231120
  5. IBUPROFEN [Suspect]
     Active Substance: IBUPROFEN
     Indication: Pain
     Dosage: UNK
     Route: 065
     Dates: start: 20231118, end: 20231120
  6. AMITRIPTYLINE HYDROCHLORIDE [Suspect]
     Active Substance: AMITRIPTYLINE HYDROCHLORIDE
     Indication: Dystonia
     Dosage: 2.000DROP (1/12 MILLILITRE) TID
     Route: 048
     Dates: end: 20231120
  7. ACETAMINOPHEN [Suspect]
     Active Substance: ACETAMINOPHEN
     Indication: Pain
     Dosage: UNK
     Route: 048
     Dates: start: 20231102, end: 20231123
  8. RIVOTRIL [Suspect]
     Active Substance: CLONAZEPAM
     Dosage: 1.000DROP (1/12 MILLILITRE) QD
     Route: 048
     Dates: end: 20231113
  9. RIVOTRIL [Suspect]
     Active Substance: CLONAZEPAM
     Dosage: 1.000DROP (1/12 MILLILITRE) BID
     Route: 048
     Dates: start: 20231114, end: 20231116
  10. RIVOTRIL [Suspect]
     Active Substance: CLONAZEPAM
     Indication: Dystonia
     Dosage: 1.000DROP (1/12 MILLILITRE) TID
     Route: 048
     Dates: start: 20231118, end: 20231120
  11. TRIENTINE HYDROCHLORIDE [Suspect]
     Active Substance: TRIENTINE HYDROCHLORIDE
     Indication: Hyperthermia
     Dosage: 40.000MG/KG
     Route: 042
     Dates: start: 20231120, end: 20231120
  12. TRAMADOL [Concomitant]
     Active Substance: TRAMADOL\TRAMADOL HYDROCHLORIDE
     Indication: Product used for unknown indication
     Dosage: UNK
     Route: 065

REACTIONS (8)
  - Acute kidney injury [Recovered/Resolved]
  - Hyperthermia [Recovered/Resolved]
  - Hepatocellular injury [Recovering/Resolving]
  - Incorrect dose administered [Recovered/Resolved]
  - Bradycardia [Recovered/Resolved]
  - Accidental overdose [Recovered/Resolved]
  - Hypotension [Recovered/Resolved]
  - Off label use [Unknown]

NARRATIVE: CASE EVENT DATE: 20231117
